FAERS Safety Report 21148830 (Version 1)
Quarter: 2022Q3

REPORT INFORMATION
  Report Type: Spontaneous
  Country: US (occurrence: None)
  Receive Date: 20220729
  Receipt Date: 20220729
  Transmission Date: 20221027
  Serious: Yes (Disabling)
  Sender: FDA-Public Use
  Company Number: US-ROCHE-3151078

PATIENT
  Sex: Female

DRUGS (1)
  1. PEGASYS [Suspect]
     Active Substance: PEGINTERFERON ALFA-2A
     Indication: Polycythaemia vera
     Route: 058

REACTIONS (6)
  - Fall [Unknown]
  - Hip fracture [Unknown]
  - Condition aggravated [Not Recovered/Not Resolved]
  - Wrist fracture [Unknown]
  - Multiple use of single-use product [Unknown]
  - Off label use [Unknown]

NARRATIVE: CASE EVENT DATE: 20190101
